FAERS Safety Report 10830736 (Version 1)
Quarter: 2015Q1

REPORT INFORMATION
  Report Type: Report from Study
  Country: US (occurrence: US)
  Receive Date: 20150219
  Receipt Date: 20150219
  Transmission Date: 20150721
  Serious: No
  Sender: FDA-Public Use
  Company Number: US-ABBVIE-14P-163-1192730-00

PATIENT
  Age: 32 Year
  Sex: Female

DRUGS (3)
  1. TRAMADOL [Concomitant]
     Active Substance: TRAMADOL
     Indication: PAIN
  2. HUMIRA [Suspect]
     Active Substance: ADALIMUMAB
     Indication: RHEUMATOID ARTHRITIS
     Dates: start: 20131219
  3. ROBAXIN [Concomitant]
     Active Substance: METHOCARBAMOL
     Indication: PAIN

REACTIONS (1)
  - Cough [Not Recovered/Not Resolved]

NARRATIVE: CASE EVENT DATE: 201401
